FAERS Safety Report 10043909 (Version 1)
Quarter: 2014Q1

REPORT INFORMATION
  Report Type: Spontaneous
  Country: US (occurrence: US)
  Receive Date: 20140328
  Receipt Date: 20140328
  Transmission Date: 20141002
  Serious: No
  Sender: FDA-Public Use
  Company Number: US-MYLANLABS-2013S1002524

PATIENT
  Age: 57 Year
  Sex: Male
  Weight: 77.11 kg

DRUGS (6)
  1. EMSAM (SELEGILINE TRANSDERMAL SYSTEM) [Suspect]
     Indication: DEPRESSION
     Dosage: Q24HR
     Route: 062
     Dates: start: 20130121
  2. EMSAM (SELEGILINE TRANSDERMAL SYSTEM) [Suspect]
     Indication: ANXIETY
     Dosage: Q24HR
     Route: 062
     Dates: start: 20130121
  3. ANTACIDS [Concomitant]
     Indication: ABDOMINAL DISCOMFORT
  4. SIMVASTATIN [Concomitant]
     Indication: BLOOD CHOLESTEROL INCREASED
  5. GABAPENTIN [Concomitant]
     Indication: INSOMNIA
  6. KLONOPIN [Concomitant]
     Indication: ANXIETY

REACTIONS (5)
  - Drug effect decreased [Not Recovered/Not Resolved]
  - Anxiety [Not Recovered/Not Resolved]
  - Depression [Not Recovered/Not Resolved]
  - Cognitive disorder [Not Recovered/Not Resolved]
  - Insomnia [Not Recovered/Not Resolved]
